FAERS Safety Report 7221688-6 (Version None)
Quarter: 2011Q1

REPORT INFORMATION
  Report Type: 
  Country: None (occurrence: None)
  Receive Date: 20110112
  Receipt Date: 20110108
  Transmission Date: 20110831
  Serious: Yes (Hospitalization)
  Sender: FDA-Public Use
  Company Number: US-ELI_LILLY_AND_COMPANY-US201007007108

PATIENT
  Sex: Male
  Weight: 77.279 kg

DRUGS (17)
  1. FOLIC ACID [Concomitant]
     Indication: PREMEDICATION
     Dates: start: 20100714
  2. OXYCODONE [Concomitant]
     Indication: PAIN
     Dosage: 5 MG, AS NEEDED
     Route: 048
     Dates: start: 20100601
  3. DEXAMETHASONE [Concomitant]
     Dosage: 4 MG, 2/D
     Route: 048
     Dates: start: 20100830
  4. DULCOLAX [Concomitant]
     Indication: CONSTIPATION
     Dosage: 10 MG, AS NEEDED
     Dates: start: 20100601
  5. NEULASTA [Concomitant]
     Indication: PROPHYLAXIS
     Dosage: 6 MG, ONCE
     Route: 058
     Dates: start: 20100722, end: 20100722
  6. VITAMIN B-12 [Concomitant]
     Indication: PREMEDICATION
     Dosage: 1000 MG, 29 WEEKS
     Route: 058
     Dates: start: 20100714
  7. OMEPRAZOLE [Concomitant]
     Indication: GASTROOESOPHAGEAL REFLUX DISEASE
     Dosage: 20 MG, DAILY (1/D)
     Route: 048
     Dates: start: 20100401
  8. DEXAMETHASONE [Concomitant]
     Indication: PREMEDICATION
     Dosage: 4 MG, 2/D
     Route: 048
     Dates: start: 20100608, end: 20100712
  9. DEXAMETHASONE [Concomitant]
     Dosage: 4 MG, DAILY (1/D)
     Route: 048
     Dates: start: 20100810, end: 20100812
  10. MORPHINE SULFATE [Concomitant]
     Indication: PAIN
     Dosage: 60 MG, 3/D
     Route: 048
     Dates: start: 20100608
  11. PEMETREXED [Suspect]
     Indication: NON-SMALL CELL LUNG CANCER
     Dosage: 500 MG/M2, OTHER
     Route: 042
     Dates: start: 20100721
  12. CARBOPLATIN [Suspect]
     Indication: NON-SMALL CELL LUNG CANCER
     Dosage: 6 D/F, OTHER
     Route: 042
     Dates: start: 20100721
  13. DEXAMETHASONE [Concomitant]
     Dosage: 4 MG, 2/D
     Route: 048
     Dates: start: 20100721, end: 20100724
  14. LACTULOSE [Concomitant]
     Indication: CONSTIPATION
     Dosage: 10 MG, AS NEEDED
     Route: 048
     Dates: start: 20100501
  15. DOCUSATE SODIUM [Concomitant]
     Indication: CONSTIPATION
     Dosage: 100 MG, AS NEEDED
     Route: 048
     Dates: start: 20100401
  16. ZOLPIDEM TARTRATE [Concomitant]
     Indication: INSOMNIA
     Dosage: 10 MG, DAILY (1/D)
     Route: 048
     Dates: start: 20100608
  17. NEULASTA [Concomitant]
     Dosage: 6 MG, ONCE
     Route: 058
     Dates: start: 20100902, end: 20100902

REACTIONS (2)
  - PULMONARY EMBOLISM [None]
  - DEEP VEIN THROMBOSIS [None]
